FAERS Safety Report 13990436 (Version 1)
Quarter: 2017Q3

REPORT INFORMATION
  Report Type: Spontaneous
  Country: FR (occurrence: FR)
  Receive Date: 20170920
  Receipt Date: 20170920
  Transmission Date: 20171128
  Serious: No
  Sender: FDA-Public Use
  Company Number: FR-GLAXOSMITHKLINE-FR2017GSK145887

PATIENT
  Sex: Female

DRUGS (1)
  1. SORIATANE [Suspect]
     Active Substance: ACITRETIN
     Indication: ICHTHYOSIS
     Dosage: UNK
     Route: 048
     Dates: start: 2004, end: 200604

REACTIONS (2)
  - Off label use [Unknown]
  - Maternal exposure before pregnancy [Unknown]
